FAERS Safety Report 4934733-5 (Version None)
Quarter: 2006Q1

REPORT INFORMATION
  Report Type: 
  Country: None (occurrence: None)
  Receive Date: 20060307
  Receipt Date: 20060214
  Transmission Date: 20060701
  Serious: Yes (Hospitalization)
  Sender: FDA-Public Use
  Company Number: US-MERCK-0602USA04483

PATIENT
  Age: 51 Year
  Sex: Male
  Weight: 86 kg

DRUGS (2)
  1. VIOXX [Suspect]
     Indication: PROCEDURAL PAIN
     Route: 048
     Dates: start: 20040520, end: 20040622
  2. EXCEDRIN (MIGRAINE) [Concomitant]
     Route: 065

REACTIONS (4)
  - ANGINA UNSTABLE [None]
  - CORONARY ARTERY DISEASE [None]
  - MYOCARDIAL INFARCTION [None]
  - PLEURAL EFFUSION [None]
